FAERS Safety Report 21025537 (Version 2)
Quarter: 2022Q3

REPORT INFORMATION
  Report Type: Spontaneous
  Country: US (occurrence: US)
  Receive Date: 20220630
  Receipt Date: 20220715
  Transmission Date: 20221027
  Serious: Yes (Other)
  Sender: FDA-Public Use
  Company Number: US-TEVA-2022-US-2043465

PATIENT
  Age: 66 Year
  Sex: Male

DRUGS (1)
  1. ACETAMINOPHEN\HYDROCODONE [Suspect]
     Active Substance: ACETAMINOPHEN\HYDROCODONE
     Indication: Pain
     Dosage: HYDROCODONE/PARACETAMOL 10MG DAILY TABLETS AT A FREQUENCY OF 3 TO 4 TIMES DAILY.
     Route: 065

REACTIONS (1)
  - Drug use disorder [Unknown]
